FAERS Safety Report 7673946-9 (Version None)
Quarter: 2011Q3

REPORT INFORMATION
  Report Type: 
  Country: None (occurrence: None)
  Receive Date: 20110810
  Receipt Date: 20110527
  Transmission Date: 20111222
  Serious: No
  Sender: FDA-Public Use
  Company Number: US-GLAXOSMITHKLINE-A0930437A

PATIENT
  Age: 43 Year
  Sex: Male
  Weight: 104.2 kg

DRUGS (3)
  1. SEROQUEL [Concomitant]
     Indication: BIPOLAR DISORDER
     Dosage: 200MG PER DAY
  2. PAXIL [Suspect]
     Indication: BIPOLAR DISORDER
     Dosage: 20MG PER DAY
     Route: 065
     Dates: start: 20060101
  3. ZOLOFT [Suspect]
     Indication: BIPOLAR DISORDER
     Route: 065
     Dates: start: 20010101

REACTIONS (2)
  - MENTAL DISABILITY [None]
  - ERECTILE DYSFUNCTION [None]
